FAERS Safety Report 9710886 (Version 2)
Quarter: 2013Q4

REPORT INFORMATION
  Report Type: Spontaneous
  Country: US (occurrence: US)
  Receive Date: 20131126
  Receipt Date: 20131126
  Transmission Date: 20140711
  Serious: No
  Sender: FDA-Public Use
  Company Number: US201208008432

PATIENT
  Age: 63 Year
  Sex: Female

DRUGS (4)
  1. BYDUREON [Suspect]
     Indication: TYPE 2 DIABETES MELLITUS
     Dosage: DURATION-ATLEAST 6 MNTHS?INTER FOR 2 MNTHS AND RESTARTED AGAIN
     Route: 058
     Dates: start: 201207
  2. BYETTA [Suspect]
     Indication: TYPE 2 DIABETES MELLITUS
     Route: 058
  3. METFORMIN [Concomitant]
     Indication: TYPE 2 DIABETES MELLITUS
     Dates: start: 201207
  4. BENADRYL [Concomitant]
     Indication: RASH PRURITIC

REACTIONS (7)
  - Rash pruritic [Not Recovered/Not Resolved]
  - Diarrhoea [Recovering/Resolving]
  - Injection site mass [Not Recovered/Not Resolved]
  - Injection site bruising [Unknown]
  - Injection site pain [Recovering/Resolving]
  - Injection site nodule [Recovering/Resolving]
  - Colitis microscopic [Not Recovered/Not Resolved]
